FAERS Safety Report 18950980 (Version 1)
Quarter: 2021Q1

REPORT INFORMATION
  Report Type: Spontaneous
  Country: US (occurrence: US)
  Receive Date: 20210228
  Receipt Date: 20210228
  Transmission Date: 20210420
  Serious: No
  Sender: FDA-Public Use
  Company Number: US-ROCHE-2706288

PATIENT
  Sex: Female
  Weight: 84.44 kg

DRUGS (8)
  1. DOXEPIN HCL [Concomitant]
     Active Substance: DOXEPIN HYDROCHLORIDE
     Route: 048
     Dates: start: 20201028, end: 20201028
  2. L?CYSTEINE [Concomitant]
     Active Substance: CYSTEINE
     Route: 048
     Dates: start: 20201028
  3. COLLAGEN PLUS C [Concomitant]
     Route: 048
     Dates: start: 20201028
  4. XOLAIR [Suspect]
     Active Substance: OMALIZUMAB
  5. XOLAIR [Suspect]
     Active Substance: OMALIZUMAB
  6. PREDNISONE. [Concomitant]
     Active Substance: PREDNISONE
     Route: 048
     Dates: start: 20180404, end: 20201028
  7. XYZAL [Concomitant]
     Active Substance: LEVOCETIRIZINE DIHYDROCHLORIDE
     Route: 048
     Dates: start: 20180504
  8. XOLAIR [Suspect]
     Active Substance: OMALIZUMAB
     Indication: IDIOPATHIC URTICARIA
     Route: 058
     Dates: start: 20191002

REACTIONS (2)
  - Weight decreased [Unknown]
  - Epstein-Barr virus infection [Unknown]
